FAERS Safety Report 17892252 (Version 2)
Quarter: 2020Q3

REPORT INFORMATION
  Report Type: Report from Study
  Country: CA (occurrence: CA)
  Receive Date: 20200612
  Receipt Date: 20200711
  Transmission Date: 20201103
  Serious: Yes (Death, Hospitalization, Other)
  Sender: FDA-Public Use
  Company Number: CA-TAKEDA-2020TUS025920

PATIENT
  Age: 60 Year
  Sex: Female

DRUGS (2)
  1. IMURAN [Concomitant]
     Active Substance: AZATHIOPRINE
     Dosage: UNK
     Dates: start: 20200425
  2. VEDOLIZUMAB [Suspect]
     Active Substance: VEDOLIZUMAB
     Indication: COLITIS ULCERATIVE
     Dosage: 300 MILLIGRAM
     Route: 042
     Dates: start: 20200428

REACTIONS (7)
  - Brain injury [Fatal]
  - Septic embolus [Recovered/Resolved]
  - Device related infection [Recovered/Resolved]
  - Acute respiratory distress syndrome [Recovered/Resolved]
  - Endocarditis staphylococcal [Recovered/Resolved]
  - Colitis ulcerative [Unknown]
  - Multiple organ dysfunction syndrome [Fatal]
